FAERS Safety Report 10670961 (Version 3)
Quarter: 2015Q1

REPORT INFORMATION
  Report Type: Spontaneous
  Country: IE (occurrence: IE)
  Receive Date: 20141223
  Receipt Date: 20150112
  Transmission Date: 20150720
  Serious: Yes (Other)
  Sender: FDA-Public Use
  Company Number: IE-BAYER-2014-169952

PATIENT
  Age: 39 Year
  Sex: Female
  Weight: 60 kg

DRUGS (2)
  1. JAYDESS [Suspect]
     Active Substance: LEVONORGESTREL
     Indication: CONTRACEPTION
     Dosage: 14 MCG/24HR, CONT
     Route: 015
     Dates: start: 20140428, end: 20140922
  2. PRIMOLUT N [Suspect]
     Active Substance: NORETHINDRONE
     Indication: VAGINAL HAEMORRHAGE
     Dosage: UNK
     Route: 048
     Dates: start: 201408

REACTIONS (7)
  - Vaginal haemorrhage [None]
  - Abortion spontaneous complete [None]
  - Pregnancy with contraceptive device [None]
  - Device expulsion [None]
  - Drug ineffective [None]
  - Drug prescribing error [None]
  - Genital haemorrhage [None]

NARRATIVE: CASE EVENT DATE: 2014
